FAERS Safety Report 12678557 (Version 1)
Quarter: 2016Q3

REPORT INFORMATION
  Report Type: Spontaneous
  Country: US (occurrence: US)
  Receive Date: 20160823
  Receipt Date: 20160823
  Transmission Date: 20161109
  Serious: No
  Sender: FDA-Public Use
  Company Number: US-PFIZER INC-2016393173

PATIENT
  Sex: Female
  Weight: 90.72 kg

DRUGS (1)
  1. NEURONTIN [Suspect]
     Active Substance: GABAPENTIN
     Indication: FIBROMYALGIA
     Dosage: 300 MG, 3X/DAY (LIQUID)

REACTIONS (3)
  - Drug ineffective for unapproved indication [Unknown]
  - Chest pain [Recovered/Resolved]
  - Hyperhidrosis [Unknown]
